FAERS Safety Report 6084654-2 (Version None)
Quarter: 2009Q1

REPORT INFORMATION
  Report Type: 
  Country: None (occurrence: None)
  Receive Date: 20090211
  Receipt Date: 20081020
  Transmission Date: 20090719
  Serious: No
  Sender: FDA-Public Use
  Company Number: US-WYE-H06485608

PATIENT
  Age: 47 Year
  Sex: Female

DRUGS (1)
  1. EFFEXOR [Suspect]
     Dosage: 75 MG 3X PER 1 DAY, ORAL
     Route: 048
     Dates: end: 20081001

REACTIONS (5)
  - DRUG WITHDRAWAL SYNDROME [None]
  - FEELING ABNORMAL [None]
  - NIGHT SWEATS [None]
  - OEDEMA PERIPHERAL [None]
  - SWELLING FACE [None]
